FAERS Safety Report 4343045-2 (Version None)
Quarter: 2004Q2

REPORT INFORMATION
  Report Type: 
  Country: None (occurrence: None)
  Receive Date: 20040421
  Receipt Date: 20040412
  Transmission Date: 20050107
  Serious: Yes (Hospitalization)
  Sender: FDA-Public Use
  Company Number: JP-ROCHE-364137

PATIENT
  Age: 79 Year
  Sex: Male

DRUGS (2)
  1. TORSEMIDE [Suspect]
     Indication: OEDEMA
     Route: 048
     Dates: start: 20031025, end: 20040203
  2. COMELIAN [Concomitant]
     Dates: start: 20031118, end: 20040203

REACTIONS (6)
  - DEPRESSED LEVEL OF CONSCIOUSNESS [None]
  - GASTROINTESTINAL STROMAL TUMOUR [None]
  - HAEMODIALYSIS [None]
  - HEPATIC ENCEPHALOPATHY [None]
  - NEOPLASM RECURRENCE [None]
  - TYPHOID FEVER [None]
